FAERS Safety Report 7549687-5 (Version None)
Quarter: 2011Q2

REPORT INFORMATION
  Report Type: 
  Country: None (occurrence: None)
  Receive Date: 20110615
  Receipt Date: 20110607
  Transmission Date: 20111010
  Serious: Yes (Hospitalization, Other)
  Sender: FDA-Public Use
  Company Number: US-ASTRAZENECA-2011SE12521

PATIENT
  Age: 57 Year
  Sex: Female
  Weight: 57.2 kg

DRUGS (2)
  1. VIMOVO [Suspect]
     Indication: ARTHRITIS
     Dosage: 500 MG NAPROXEN + 20 MG ESOMEPRAZOLE MAGNESIUM DAILY FOR FEW WEEKS
     Route: 048
     Dates: start: 20110208, end: 20110301
  2. VIMOVO [Suspect]
     Indication: OSTEOARTHRITIS
     Dosage: 500 MG NAPROXEN + 20 MG ESOMEPRAZOLE MAGNESIUM DAILY FOR FEW WEEKS
     Route: 048
     Dates: start: 20110208, end: 20110301

REACTIONS (7)
  - ANAEMIA [None]
  - FAECES DISCOLOURED [None]
  - MELAENA [None]
  - TRANSFUSION [None]
  - LOSS OF CONSCIOUSNESS [None]
  - DIZZINESS [None]
  - ENDOSCOPY [None]
